FAERS Safety Report 6787336-4 (Version None)
Quarter: 2010Q2

REPORT INFORMATION
  Report Type: 
  Country: None (occurrence: None)
  Receive Date: 20100623
  Receipt Date: 20070119
  Transmission Date: 20101027
  Serious: No
  Sender: FDA-Public Use
  Company Number: US-PFIZER INC-2007005239

PATIENT
  Age: 29 Year
  Weight: 61.23 kg

DRUGS (4)
  1. GEODON [Suspect]
  2. STELAZINE [Concomitant]
  3. CELEXA [Concomitant]
  4. TRAZODONE HYDROCHLORIDE [Concomitant]

REACTIONS (1)
  - SOMNOLENCE [None]
